FAERS Safety Report 12620166 (Version 2)
Quarter: 2016Q3

REPORT INFORMATION
  Report Type: Spontaneous
  Country: MX (occurrence: MX)
  Receive Date: 20160803
  Receipt Date: 20160810
  Transmission Date: 20161109
  Serious: Yes (Life-Threatening, Other)
  Sender: FDA-Public Use
  Company Number: MX-B.I. PHARMACEUTICALS,INC./RIDGEFIELD-2016-BI-50452MX

PATIENT
  Age: 64 Year

DRUGS (2)
  1. PRADAXAR [Suspect]
     Active Substance: DABIGATRAN ETEXILATE MESYLATE
     Indication: CEREBROVASCULAR DISORDER
     Dosage: 220 MG
     Route: 065
  2. TELMISARTAN/AMLODIPINE [Concomitant]
     Active Substance: AMLODIPINE\TELMISARTAN
     Indication: PRODUCT USED FOR UNKNOWN INDICATION
     Route: 065

REACTIONS (2)
  - Brain injury [Unknown]
  - Embolism [Unknown]

NARRATIVE: CASE EVENT DATE: 201607
